FAERS Safety Report 17486928 (Version 1)
Quarter: 2020Q1

REPORT INFORMATION
  Report Type: Spontaneous
  Country: CN (occurrence: CN)
  Receive Date: 20200303
  Receipt Date: 20200303
  Transmission Date: 20200409
  Serious: Yes (Other)
  Sender: FDA-Public Use
  Company Number: CN-ROCHE-2558865

PATIENT

DRUGS (39)
  1. MABTHERA [Suspect]
     Active Substance: RITUXIMAB
     Dosage: R-CHOP REGIMEN
     Route: 065
     Dates: start: 20181221
  2. CYCLOPHOSPHAMIDE. [Concomitant]
     Active Substance: CYCLOPHOSPHAMIDE
     Dosage: R-CHOP REGIMEN
     Route: 065
     Dates: start: 20181221
  3. PIRARUBICIN [Concomitant]
     Active Substance: PIRARUBICIN
     Indication: DIFFUSE LARGE B-CELL LYMPHOMA
     Dosage: DAY1, R-CHOP REGIMEN
     Route: 065
     Dates: start: 20180901
  4. DEXAMETHASONE. [Concomitant]
     Active Substance: DEXAMETHASONE
     Dosage: DAY1-5, R-CHOP REGIMEN
     Route: 065
     Dates: start: 20181015
  5. MABTHERA [Suspect]
     Active Substance: RITUXIMAB
     Dosage: DAY0
     Route: 065
     Dates: start: 20191216
  6. CYCLOPHOSPHAMIDE. [Concomitant]
     Active Substance: CYCLOPHOSPHAMIDE
     Dosage: R-CHOP REGIMEN
     Route: 065
     Dates: start: 20181130
  7. CYCLOPHOSPHAMIDE. [Concomitant]
     Active Substance: CYCLOPHOSPHAMIDE
     Dosage: R-CHOP REGIMEN
     Route: 065
     Dates: start: 20190111
  8. DEXAMETHASONE. [Concomitant]
     Active Substance: DEXAMETHASONE
     Indication: DIFFUSE LARGE B-CELL LYMPHOMA
     Dosage: DAY1-5, R-CHOP REGIMEN
     Route: 065
     Dates: start: 20180901
  9. MABTHERA [Suspect]
     Active Substance: RITUXIMAB
     Dosage: R-CHOP REGIMEN
     Route: 065
     Dates: start: 20190111
  10. PIRARUBICIN [Concomitant]
     Active Substance: PIRARUBICIN
     Dosage: DAY1, R-CHOP REGIMEN
     Route: 065
     Dates: start: 20180921
  11. PIRARUBICIN [Concomitant]
     Active Substance: PIRARUBICIN
     Dosage: DAY1, R-CHOP REGIMEN
     Route: 065
     Dates: start: 20181109
  12. PIRARUBICIN [Concomitant]
     Active Substance: PIRARUBICIN
     Dosage: R-CHOP REGIMEN
     Route: 065
     Dates: start: 20181221
  13. DEXAMETHASONE. [Concomitant]
     Active Substance: DEXAMETHASONE
     Dosage: R-CHOP REGIMEN
     Route: 065
     Dates: start: 20181130
  14. DEXAMETHASONE. [Concomitant]
     Active Substance: DEXAMETHASONE
     Dosage: R-CHOP REGIMEN
     Route: 065
     Dates: start: 20181221
  15. CARBOPLATIN. [Concomitant]
     Active Substance: CARBOPLATIN
     Indication: DIFFUSE LARGE B-CELL LYMPHOMA
     Dosage: DAY2
     Route: 065
     Dates: start: 20191216
  16. PIRARUBICIN [Concomitant]
     Active Substance: PIRARUBICIN
     Dosage: DAY1, R-CHOP REGIMEN
     Route: 065
     Dates: start: 20181015
  17. VINCRISTINE [Concomitant]
     Active Substance: VINCRISTINE
     Dosage: R-CHOP REGIMEN
     Route: 065
     Dates: start: 20181130
  18. VINCRISTINE [Concomitant]
     Active Substance: VINCRISTINE
     Dosage: R-CHOP REGIMEN
     Route: 065
     Dates: start: 20190111
  19. DEXAMETHASONE. [Concomitant]
     Active Substance: DEXAMETHASONE
     Dosage: R-CHOP REGIMEN
     Route: 065
     Dates: start: 20190111
  20. IFOSFAMIDE. [Concomitant]
     Active Substance: IFOSFAMIDE
     Indication: DIFFUSE LARGE B-CELL LYMPHOMA
     Dosage: DAY1-3
     Route: 065
     Dates: start: 20191216
  21. MABTHERA [Suspect]
     Active Substance: RITUXIMAB
     Indication: DIFFUSE LARGE B-CELL LYMPHOMA
     Dosage: DAY0, R-CHOP REGIMEN
     Route: 065
     Dates: start: 20180901
  22. MABTHERA [Suspect]
     Active Substance: RITUXIMAB
     Dosage: DAY0, R-CHOP REGIMEN
     Route: 065
     Dates: start: 20180921
  23. MABTHERA [Suspect]
     Active Substance: RITUXIMAB
     Dosage: R-CHOP REGIMEN
     Route: 065
     Dates: start: 20181130
  24. CYCLOPHOSPHAMIDE. [Concomitant]
     Active Substance: CYCLOPHOSPHAMIDE
     Dosage: DAY1, R-CHOP REGIMEN
     Route: 065
     Dates: start: 20180921
  25. CYCLOPHOSPHAMIDE. [Concomitant]
     Active Substance: CYCLOPHOSPHAMIDE
     Dosage: DAY1, R-CHOP REGIMEN
     Route: 065
     Dates: start: 20181109
  26. CYCLOPHOSPHAMIDE. [Concomitant]
     Active Substance: CYCLOPHOSPHAMIDE
     Indication: DIFFUSE LARGE B-CELL LYMPHOMA
     Dosage: DAY1, R-CHOP REGIMEN
     Route: 065
     Dates: start: 20180901
  27. VINCRISTINE [Concomitant]
     Active Substance: VINCRISTINE
     Dosage: DAY1, R-CHOP REGIMEN
     Route: 065
     Dates: start: 20181015
  28. VINCRISTINE [Concomitant]
     Active Substance: VINCRISTINE
     Dosage: R-CHOP REGIMEN
     Route: 065
     Dates: start: 20181221
  29. MABTHERA [Suspect]
     Active Substance: RITUXIMAB
     Dosage: DAY0, R-CHOP REGIMEN
     Route: 065
     Dates: start: 20181015
  30. MABTHERA [Suspect]
     Active Substance: RITUXIMAB
     Dosage: DAY0, R-CHOP REGIMEN
     Route: 065
     Dates: start: 20181109
  31. CYCLOPHOSPHAMIDE. [Concomitant]
     Active Substance: CYCLOPHOSPHAMIDE
     Dosage: DAY1, R-CHOP REGIMEN
     Route: 065
     Dates: start: 20181015
  32. PIRARUBICIN [Concomitant]
     Active Substance: PIRARUBICIN
     Dosage: R-CHOP REGIMEN
     Route: 065
     Dates: start: 20190111
  33. VINCRISTINE [Concomitant]
     Active Substance: VINCRISTINE
     Dosage: DAY1, R-CHOP REGIMEN
     Route: 065
     Dates: start: 20180921
  34. DEXAMETHASONE. [Concomitant]
     Active Substance: DEXAMETHASONE
     Dosage: DAY1-5, R-CHOP REGIMEN
     Route: 065
     Dates: start: 20181109
  35. ETOPOSIDE. [Concomitant]
     Active Substance: ETOPOSIDE
     Indication: DIFFUSE LARGE B-CELL LYMPHOMA
     Dosage: DAY1-3
     Route: 065
     Dates: start: 20191216
  36. PIRARUBICIN [Concomitant]
     Active Substance: PIRARUBICIN
     Dosage: R-CHOP REGIMEN
     Route: 065
     Dates: start: 20181130
  37. VINCRISTINE [Concomitant]
     Active Substance: VINCRISTINE
     Indication: DIFFUSE LARGE B-CELL LYMPHOMA
     Dosage: DAY1, R-CHOP REGIMEN
     Route: 065
     Dates: start: 20180901
  38. VINCRISTINE [Concomitant]
     Active Substance: VINCRISTINE
     Dosage: DAY1, R-CHOP REGIMEN
     Route: 065
     Dates: start: 20181109
  39. DEXAMETHASONE. [Concomitant]
     Active Substance: DEXAMETHASONE
     Dosage: DAY1-5, R-CHOP REGIMEN
     Route: 065
     Dates: start: 20180921

REACTIONS (3)
  - Lacunar infarction [Unknown]
  - Anaemia [Unknown]
  - Sinusitis [Unknown]
